FAERS Safety Report 8593385 (Version 4)
Quarter: 2014Q1

REPORT INFORMATION
  Report Type: Spontaneous
  Country: US (occurrence: US)
  Receive Date: 20120604
  Receipt Date: 20140108
  Transmission Date: 20141002
  Serious: Yes (Disabling, Other)
  Sender: FDA-Public Use
  Company Number: US-ASTRAZENECA-2012SE35251

PATIENT
  Age: 37 Year
  Sex: Female
  Weight: 67.1 kg

DRUGS (15)
  1. NEXIUM [Suspect]
     Indication: GASTROOESOPHAGEAL REFLUX DISEASE
     Route: 048
  2. PRILOSEC [Suspect]
     Route: 048
  3. PREVACID [Concomitant]
  4. ZEGERID [Concomitant]
  5. ACIPHEX [Concomitant]
  6. MYLANTA [Concomitant]
  7. CELEBREX [Concomitant]
  8. HYZAAR [Concomitant]
  9. TRAZEDONE [Concomitant]
  10. ZOLOFT [Concomitant]
  11. AMITIZA [Concomitant]
  12. NAPROXEN [Concomitant]
  13. FLEXERIL [Concomitant]
  14. MIRALAX [Concomitant]
     Dates: start: 200906
  15. LYRICA [Concomitant]
     Dates: start: 200906

REACTIONS (17)
  - Pelvic fracture [Unknown]
  - Back pain [Unknown]
  - Arthralgia [Unknown]
  - Osteoporosis [Unknown]
  - Foot fracture [Unknown]
  - Angina pectoris [Unknown]
  - Calcium deficiency [Unknown]
  - Arthritis [Unknown]
  - Atrophy [Unknown]
  - Rheumatoid arthritis [Unknown]
  - Vitamin D deficiency [Unknown]
  - Anxiety [Unknown]
  - Intervertebral disc degeneration [Unknown]
  - Facial bones fracture [Unknown]
  - Intervertebral disc protrusion [Unknown]
  - Malaise [Unknown]
  - Depression [Unknown]
